FAERS Safety Report 21899455 (Version 1)
Quarter: 2023Q1

REPORT INFORMATION
  Report Type: Spontaneous
  Country: US (occurrence: US)
  Receive Date: 20230123
  Receipt Date: 20230123
  Transmission Date: 20230418
  Serious: No
  Sender: FDA-Public Use
  Company Number: US-NOVOPROD-952544

PATIENT
  Sex: Female

DRUGS (1)
  1. OZEMPIC [Suspect]
     Active Substance: SEMAGLUTIDE
     Indication: Product used for unknown indication
     Dosage: UNK
     Route: 058

REACTIONS (7)
  - Weight decreased [Unknown]
  - Glycosylated haemoglobin decreased [Unknown]
  - Fatigue [Unknown]
  - Blood glucose increased [Unknown]
  - Thirst [Unknown]
  - Pollakiuria [Unknown]
  - Feeling abnormal [Unknown]
